FAERS Safety Report 24875339 (Version 6)
Quarter: 2025Q2

REPORT INFORMATION
  Report Type: Report from Study
  Country: CN (occurrence: CN)
  Receive Date: 20250122
  Receipt Date: 20250515
  Transmission Date: 20250716
  Serious: No
  Sender: MERCK SHARP & DOHME LLC
  Company Number: CN-009507513-2501CHN004905

PATIENT
  Age: 73 Year
  Sex: Female
  Weight: 70 kg

DRUGS (1)
  1. LAGEVRIO [Suspect]
     Active Substance: MOLNUPIRAVIR
     Indication: COVID-19 treatment
     Dosage: DOSE DESCRIPTION : STRENGTH 0.2 G, 0.8 G, Q12H?DAILY DOSE : 1.6 GRAM?REGIMEN DOSE : 17.6  GRAM
     Route: 048
     Dates: start: 20240423, end: 20240503

REACTIONS (3)
  - Pancreatic enlargement [Unknown]
  - Incorrect product administration duration [Unknown]
  - SARS-CoV-2 test positive [Unknown]

NARRATIVE: CASE EVENT DATE: 20240501
